FAERS Safety Report 7997178-X (Version None)
Quarter: 2011Q4

REPORT INFORMATION
  Report Type: 
  Country: None (occurrence: None)
  Receive Date: 20111221
  Receipt Date: 20111213
  Transmission Date: 20120403
  Serious: Yes (Hospitalization)
  Sender: FDA-Public Use
  Company Number: FR-JNJFOC-20111011939

PATIENT
  Sex: Female
  Weight: 61 kg

DRUGS (24)
  1. RISPERDAL [Suspect]
     Indication: DEMENTIA
     Route: 048
     Dates: end: 20111001
  2. TIAPRIDAL [Suspect]
     Dosage: 1 DOSE / 0.5 DOSES / 0.5 DOSES
     Route: 030
     Dates: start: 20111008, end: 20111010
  3. RISPERDAL CONSTA [Suspect]
     Route: 030
  4. TIAPRIDAL [Concomitant]
     Route: 048
     Dates: end: 20111003
  5. HALDOL [Concomitant]
     Dates: start: 20111003, end: 20111003
  6. GLUCIDION [Concomitant]
     Route: 042
     Dates: start: 20111003, end: 20111014
  7. RISPERDAL CONSTA [Suspect]
     Route: 030
     Dates: start: 20111014, end: 20111014
  8. ACETAMINOPHEN [Concomitant]
     Route: 048
  9. TIAPRIDAL [Concomitant]
     Route: 048
     Dates: start: 20111014
  10. TRIMEPRAZINE TARTRATE [Concomitant]
     Route: 048
     Dates: end: 20111003
  11. AMOXICILLIN TRIHYDRATE [Concomitant]
     Indication: URINARY TRACT INFECTION
     Dates: start: 20111010, end: 20111015
  12. NACL [Concomitant]
     Indication: DEHYDRATION
     Route: 065
     Dates: start: 20111003, end: 20111003
  13. TIAPRIDAL [Suspect]
     Indication: PRODUCT USED FOR UNKNOWN INDICATION
     Route: 030
     Dates: start: 20111003, end: 20111008
  14. RISPERDAL CONSTA [Suspect]
     Indication: DEMENTIA
     Route: 030
     Dates: start: 20111014, end: 20111014
  15. DEBRIDAT [Concomitant]
     Route: 048
  16. RISPERDAL CONSTA [Suspect]
     Indication: PSYCHOTIC DISORDER
     Route: 030
  17. METFORMIN HCL [Concomitant]
     Route: 048
  18. FUROSEMIDE [Concomitant]
     Dosage: 1 DOSE/ 0.5 DOSES
     Route: 048
     Dates: end: 20111003
  19. RISPERDAL [Suspect]
     Route: 048
     Dates: start: 20111007
  20. TIAPRIDAL [Suspect]
     Route: 030
     Dates: end: 20111001
  21. POTASSIUM CHLORIDE [Concomitant]
     Route: 048
  22. HALDOL [Concomitant]
     Indication: COMPUTERISED TOMOGRAM
     Dates: start: 20111005, end: 20111005
  23. TRIHEXYPHENIDYL HYDROCHLORIDE [Concomitant]
     Route: 048
  24. TIAPRIDAL [Concomitant]
     Route: 042
     Dates: start: 20111003, end: 20111008

REACTIONS (2)
  - PANCYTOPENIA [None]
  - HYPOTHERMIA [None]
